FAERS Safety Report 17979360 (Version 1)
Quarter: 2020Q3

REPORT INFORMATION
  Report Type: Spontaneous
  Country: NL (occurrence: NL)
  Receive Date: 20200703
  Receipt Date: 20200703
  Transmission Date: 20201103
  Serious: Yes (Other)
  Sender: FDA-Public Use
  Company Number: NL-TEVA-2018-NL-893949

PATIENT
  Age: 29 Year
  Sex: Female
  Weight: 67 kg

DRUGS (2)
  1. L?LYSINE [Concomitant]
     Active Substance: LYSINE
     Dosage: THERAPY START DATE: ASKED BUT UNKNOWN, THERAPY END DATE: ASKED BUT UNKNOWN
     Route: 065
  2. METRONIDAZOL TABLET 500MG TABLET, 500 MG (MILLIGRAM) [Suspect]
     Active Substance: METRONIDAZOLE
     Indication: PRODUCT USED FOR UNKNOWN INDICATION
     Dosage: 1 X PER DAY 4 PIECES
     Dates: start: 20180312, end: 20180314

REACTIONS (4)
  - Decreased appetite [Recovering/Resolving]
  - Depressed mood [Recovering/Resolving]
  - Confusional state [Not Recovered/Not Resolved]
  - Heart rate increased [Recovering/Resolving]

NARRATIVE: CASE EVENT DATE: 20180312
